FAERS Safety Report 5942679-9 (Version None)
Quarter: 2008Q4

REPORT INFORMATION
  Report Type: 
  Country: None (occurrence: None)
  Receive Date: 20081106
  Receipt Date: 20081029
  Transmission Date: 20090506
  Serious: Yes (Death)
  Sender: FDA-Public Use
  Company Number: IE-RANBAXY-2008RR-19009

PATIENT
  Age: 61 Year
  Sex: Female

DRUGS (6)
  1. NIMESULIDE [Suspect]
     Dosage: UNK
  2. FLUOXETINE [Suspect]
  3. ASPIRIN [Suspect]
  4. VALSARTAN AND HYDROCHLOROTHIAZIDE [Suspect]
  5. NEBIVOLOL HCL [Suspect]
  6. LEVOTHYROXINE SODIUM [Suspect]

REACTIONS (1)
  - HEPATIC FAILURE [None]
